FAERS Safety Report 23672867 (Version 3)
Quarter: 2025Q2

REPORT INFORMATION
  Report Type: Spontaneous
  Country: JP (occurrence: JP)
  Receive Date: 20240326
  Receipt Date: 20250417
  Transmission Date: 20250717
  Serious: Yes (Death, Other)
  Sender: BRISTOL MYERS SQUIBB
  Company Number: JP-BRISTOL-MYERS SQUIBB COMPANY-2024-047557

PATIENT
  Age: 69 Year
  Sex: Female

DRUGS (7)
  1. VIDAZA [Suspect]
     Active Substance: AZACITIDINE
     Indication: Acute myeloid leukaemia
     Route: 042
  2. VIDAZA [Suspect]
     Active Substance: AZACITIDINE
     Indication: Myelodysplastic syndrome
  3. VENETOCLAX [Concomitant]
     Active Substance: VENETOCLAX
     Indication: Acute myeloid leukaemia
  4. AMBISOME [Concomitant]
     Active Substance: AMPHOTERICIN B
     Route: 048
  5. FLUCYTOSINE [Concomitant]
     Active Substance: FLUCYTOSINE
  6. VORICONAZOLE [Concomitant]
     Active Substance: VORICONAZOLE
  7. FLUCONAZOLE [Concomitant]
     Active Substance: FLUCONAZOLE

REACTIONS (3)
  - Scedosporium infection [Unknown]
  - Cardiac tamponade [Fatal]
  - Pericardial effusion [Fatal]
